FAERS Safety Report 9911867 (Version 1)
Quarter: 2014Q1

REPORT INFORMATION
  Report Type: Spontaneous
  Country: US (occurrence: US)
  Receive Date: 20140219
  Receipt Date: 20140219
  Transmission Date: 20141002
  Serious: No
  Sender: FDA-Public Use
  Company Number: US-MYLANLABS-2013S1011002

PATIENT
  Age: 9 Year
  Sex: Female
  Weight: 27.21 kg

DRUGS (1)
  1. EPIPEN [Suspect]
     Dosage: 0.3 ML, 1X/DAY, (1:1000)
     Route: 030
     Dates: start: 20130513, end: 20130513

REACTIONS (1)
  - Accidental exposure to product by child [Unknown]
